FAERS Safety Report 16811295 (Version 3)
Quarter: 2020Q3

REPORT INFORMATION
  Report Type: Spontaneous
  Country: FI (occurrence: FI)
  Receive Date: 20190916
  Receipt Date: 20200930
  Transmission Date: 20201102
  Serious: Yes (Disabling, Other)
  Sender: FDA-Public Use
  Company Number: FI-JNJFOC-20190905676

PATIENT
  Age: 61 Year
  Sex: Male

DRUGS (33)
  1. DIVISUN [Concomitant]
     Active Substance: CHOLECALCIFEROL
     Route: 048
  2. PARA?TABS [Concomitant]
     Active Substance: ACETAMINOPHEN
     Dosage: AS NECESSARY
     Route: 048
  3. METOHEXAL                          /00376902/ [Concomitant]
     Active Substance: METOPROLOL SUCCINATE
     Route: 048
  4. EMGESAN [Concomitant]
     Active Substance: MAGNESIUM HYDROXIDE
     Route: 048
  5. EMGESAN [Concomitant]
     Active Substance: MAGNESIUM HYDROXIDE
     Route: 048
  6. TRAMADOL RETARD [Concomitant]
     Active Substance: TRAMADOL
  7. ATARAX [Concomitant]
     Active Substance: HYDROXYZINE HYDROCHLORIDE
     Dosage: AS NECESSARY
     Route: 048
  8. TRAMAL [Concomitant]
     Active Substance: TRAMADOL
     Dosage: AS NECESSARY
     Route: 048
  9. TREMFYA [Suspect]
     Active Substance: GUSELKUMAB
     Indication: PSORIASIS
     Route: 058
     Dates: start: 20190523, end: 20190618
  10. LYRICA [Concomitant]
     Active Substance: PREGABALIN
     Route: 048
  11. OFTAGEL [Concomitant]
     Active Substance: CARBOMER
  12. SOMAC [Concomitant]
     Active Substance: PANTOPRAZOLE SODIUM
     Route: 048
  13. TREMFYA [Suspect]
     Active Substance: GUSELKUMAB
  14. MUCOMYST [Concomitant]
     Active Substance: ACETYLCYSTEINE
     Route: 048
  15. EPIPEN [Concomitant]
     Active Substance: EPINEPHRINE
  16. TRINEURIN                          /00176001/ [Concomitant]
     Route: 048
  17. LYRICA [Concomitant]
     Active Substance: PREGABALIN
     Route: 048
  18. MUCOMYST [Concomitant]
     Active Substance: ACETYLCYSTEINE
     Route: 048
  19. LITALGIN                           /00320201/ [Concomitant]
     Dosage: AS NECESSARY
     Route: 048
  20. BURANA [Concomitant]
     Active Substance: IBUPROFEN
     Route: 048
  21. OXYNORM [Concomitant]
     Active Substance: OXYCODONE HYDROCHLORIDE
     Dosage: AS NECESSARY
     Route: 048
  22. TENOX                              /00393701/ [Concomitant]
     Active Substance: TEMAZEPAM
     Route: 048
  23. VENTOLINE                          /00139501/ [Concomitant]
     Active Substance: ALBUTEROL
     Dosage: AS NECESSARY
     Route: 055
  24. TIOTROPIUM BROMIDE [Concomitant]
     Active Substance: TIOTROPIUM BROMIDE
     Dosage: SPIRIVA RESPIMAT
     Route: 055
  25. TRAMADOL RETARD [Concomitant]
     Active Substance: TRAMADOL
     Route: 048
  26. SERETIDE [Concomitant]
     Active Substance: FLUTICASONE PROPIONATE\SALMETEROL XINAFOATE
     Dosage: AS NECESSARY
     Route: 055
  27. DIVISUN [Concomitant]
     Active Substance: CHOLECALCIFEROL
     Route: 048
  28. ZANIDIP [Concomitant]
     Active Substance: LERCANIDIPINE HYDROCHLORIDE
     Route: 048
  29. ZANIDIP [Concomitant]
     Active Substance: LERCANIDIPINE HYDROCHLORIDE
     Route: 048
  30. SERTRALINE [Concomitant]
     Active Substance: SERTRALINE HYDROCHLORIDE
     Route: 048
  31. SERTRALINE [Concomitant]
     Active Substance: SERTRALINE HYDROCHLORIDE
     Route: 048
  32. SILDENAFIL. [Concomitant]
     Active Substance: SILDENAFIL
     Dosage: AS NECESSARY
     Route: 048
  33. VI?SIBLIN                          /00222601/ [Concomitant]

REACTIONS (1)
  - Osteonecrosis [Not Recovered/Not Resolved]

NARRATIVE: CASE EVENT DATE: 20190614
